FAERS Safety Report 9271747 (Version 2)
Quarter: 2013Q3

REPORT INFORMATION
  Report Type: Spontaneous
  Country: CL (occurrence: CL)
  Receive Date: 20130506
  Receipt Date: 20130920
  Transmission Date: 20140515
  Serious: Yes (Hospitalization)
  Sender: FDA-Public Use
  Company Number: CL-BRISTOL-MYERS SQUIBB COMPANY-18844423

PATIENT
  Age: 58 Year
  Sex: Female

DRUGS (5)
  1. ORENCIA [Suspect]
     Indication: ANKYLOSING SPONDYLITIS
     Dosage: RE-STARTING DATE: JAN-2013
     Route: 042
     Dates: start: 20111206, end: 20130906
  2. CIBLEX [Concomitant]
  3. METFORMIN [Concomitant]
  4. TRAMAL LONG [Concomitant]
  5. PARACETAMOL [Concomitant]

REACTIONS (2)
  - Cholangitis chronic [Unknown]
  - Drug ineffective [Unknown]
